FAERS Safety Report 14798552 (Version 1)
Quarter: 2018Q2

REPORT INFORMATION
  Report Type: Spontaneous
  Country: IN (occurrence: IN)
  Receive Date: 20180424
  Receipt Date: 20180424
  Transmission Date: 20180711
  Serious: Yes (Death, Hospitalization, Other)
  Sender: FDA-Public Use
  Company Number: IN-CPL-000325

PATIENT
  Age: 45 Year
  Sex: Male

DRUGS (1)
  1. OFLOXACIN. [Suspect]
     Active Substance: OFLOXACIN
     Indication: DIARRHOEA
     Dosage: 400 MG TWICE A DAY FOR FIVE DAYS

REACTIONS (4)
  - Stevens-Johnson syndrome [Recovered/Resolved]
  - Hypovolaemic shock [Fatal]
  - Toxic epidermal necrolysis [Fatal]
  - Systemic infection [Fatal]
